FAERS Safety Report 13503233 (Version 1)
Quarter: 2017Q2

REPORT INFORMATION
  Report Type: Spontaneous
  Country: US (occurrence: US)
  Receive Date: 20170502
  Receipt Date: 20170502
  Transmission Date: 20170830
  Serious: No
  Sender: FDA-Public Use
  Company Number: US-PFIZER INC-2017187186

PATIENT
  Age: 4 Year
  Sex: Male
  Weight: 16 kg

DRUGS (2)
  1. EUCRISA [Suspect]
     Active Substance: CRISABOROLE
     Indication: ECZEMA
     Dosage: UNK, 1X/DAY, TO STOMACH, JOCK AREA, HANDS, FEET, SPOT ON HIS HIP
     Route: 061
     Dates: start: 201704, end: 20170425
  2. CORTIZONE 10 [Suspect]
     Active Substance: HYDROCORTISONE
     Indication: ECZEMA
     Dosage: UNK, 1X/DAY

REACTIONS (5)
  - Application site erythema [Not Recovered/Not Resolved]
  - Dermatitis [Not Recovered/Not Resolved]
  - Condition aggravated [Unknown]
  - Eczema [Unknown]
  - Drug ineffective [Unknown]

NARRATIVE: CASE EVENT DATE: 20170424
